FAERS Safety Report 14261477 (Version 4)
Quarter: 2018Q4

REPORT INFORMATION
  Report Type: Spontaneous
  Country: DE (occurrence: DE)
  Receive Date: 20171208
  Receipt Date: 20181015
  Transmission Date: 20190204
  Serious: Yes (Other)
  Sender: FDA-Public Use
  Company Number: DE-AMGEN-DEUSP2017160587

PATIENT
  Age: 61 Year
  Sex: Female

DRUGS (7)
  1. PROCORALAN [Suspect]
     Active Substance: IVABRADINE
     Dosage: 5 MG, BID
     Route: 048
     Dates: start: 20180820
  2. ASCORBIC ACID. [Concomitant]
     Active Substance: ASCORBIC ACID
     Indication: PRODUCT USED FOR UNKNOWN INDICATION
     Dosage: UNK
  3. PROCORALAN [Suspect]
     Active Substance: IVABRADINE
     Indication: CARDIOMYOPATHY
     Dosage: 7.5 MG, BID
     Route: 048
     Dates: start: 20170822, end: 20180820
  4. DEKRISTOL [Suspect]
     Active Substance: CHOLECALCIFEROL
     Dosage: 2 G, QWK
     Route: 065
     Dates: start: 20180815, end: 20180821
  5. DEKRISTOL [Suspect]
     Active Substance: CHOLECALCIFEROL
     Dosage: 0.5 G, QWK
     Route: 065
     Dates: start: 20180826
  6. MINERALS NOS W/VITAMINS NOS [Concomitant]
     Active Substance: MINERALS\VITAMINS
     Indication: HYPOVITAMINOSIS
     Dosage: UNK
  7. DEKRISTOL [Suspect]
     Active Substance: CHOLECALCIFEROL
     Indication: PRODUCT USED FOR UNKNOWN INDICATION
     Dosage: 0.5 G, QWK
     Route: 065
     Dates: end: 20180630

REACTIONS (12)
  - Polyuria [Not Recovered/Not Resolved]
  - Arrhythmia [Recovered/Resolved]
  - Off label use [Unknown]
  - Hepatomegaly [Not Recovered/Not Resolved]
  - Drug interaction [Recovered/Resolved]
  - Euphoric mood [Recovered/Resolved]
  - Weight decreased [Recovered/Resolved]
  - Abdominal discomfort [Recovered/Resolved]
  - Diplopia [Recovered/Resolved]
  - Palpitations [Not Recovered/Not Resolved]
  - Ventricular fibrillation [Recovered/Resolved]
  - Pulse abnormal [Recovered/Resolved]

NARRATIVE: CASE EVENT DATE: 2017
